FAERS Safety Report 20297707 (Version 1)
Quarter: 2022Q1

REPORT INFORMATION
  Report Type: Spontaneous
  Country: US (occurrence: None)
  Receive Date: 20220105
  Receipt Date: 20220105
  Transmission Date: 20220423
  Serious: Yes (Hospitalization)
  Sender: FDA-Public Use
  Company Number: US-ROCHE-2715400

PATIENT
  Sex: Female
  Weight: 65.58 kg

DRUGS (2)
  1. ACTIVASE [Suspect]
     Active Substance: ALTEPLASE
     Indication: Ischaemic stroke
     Dosage: FULL DOSE RECEIVED INCLUDING BOLUS DOSE
     Route: 042
     Dates: start: 202010, end: 202010
  2. ACTIVASE [Suspect]
     Active Substance: ALTEPLASE
     Dosage: FULL DOSE RECEIVED INCLUDING BOLUS DOSE
     Route: 042
     Dates: start: 20200914, end: 20200914

REACTIONS (5)
  - Lip swelling [Unknown]
  - Hypersensitivity [Unknown]
  - Flushing [Recovered/Resolved]
  - Feeling abnormal [Recovered/Resolved]
  - Dyspnoea [Recovered/Resolved]

NARRATIVE: CASE EVENT DATE: 20200914
